FAERS Safety Report 8213810-X (Version None)
Quarter: 2012Q1

REPORT INFORMATION
  Report Type: 
  Country: None (occurrence: None)
  Receive Date: 20120316
  Receipt Date: 20120307
  Transmission Date: 20120608
  Serious: Yes (Hospitalization)
  Sender: FDA-Public Use
  Company Number: US-BIOGENIDEC-2012BI008642

PATIENT
  Age: 45 Year
  Sex: Female

DRUGS (4)
  1. BACLOFEN [Concomitant]
     Indication: MUSCLE SPASTICITY
  2. TYSABRI [Suspect]
     Route: 042
  3. NEURONTIN [Concomitant]
     Indication: HEADACHE
  4. TYSABRI [Suspect]
     Indication: MULTIPLE SCLEROSIS
     Route: 042
     Dates: start: 20060911

REACTIONS (1)
  - HYSTERECTOMY [None]
